FAERS Safety Report 19943753 (Version 1)
Quarter: 2021Q4

REPORT INFORMATION
  Report Type: Report from Study
  Country: NL (occurrence: NL)
  Receive Date: 20211011
  Receipt Date: 20211011
  Transmission Date: 20220303
  Serious: Yes (Hospitalization, Other)
  Sender: FDA-Public Use
  Company Number: NL-BRISTOL-MYERS SQUIBB COMPANY-BMS-2021-101458

PATIENT
  Age: 55 Year
  Sex: Female

DRUGS (4)
  1. NIVOLUMAB [Suspect]
     Active Substance: NIVOLUMAB
     Indication: Breast cancer
     Dosage: 240 MILLIGRAM, D1 AND D15
     Route: 042
     Dates: start: 20210625, end: 20210708
  2. IPILIMUMAB [Suspect]
     Active Substance: IPILIMUMAB
     Indication: Breast cancer
     Dosage: 1 MILLIGRAM/KILOGRAM, QWK
     Route: 042
     Dates: start: 20210625, end: 20210625
  3. CARBOPLATIN [Suspect]
     Active Substance: CARBOPLATIN
     Indication: Breast cancer
     Dosage: AUC 5, D1, D8, D15
     Route: 042
     Dates: start: 20210917, end: 20210917
  4. PACLITAXEL [Suspect]
     Active Substance: PACLITAXEL
     Indication: Breast cancer
     Dosage: 80 MILLIGRAM/SQ. METER, D1, D8, D15
     Route: 042
     Dates: start: 20210917, end: 20210917

REACTIONS (1)
  - Diabetic ketoacidosis [Not Recovered/Not Resolved]

NARRATIVE: CASE EVENT DATE: 20211002
